FAERS Safety Report 8362426-3 (Version None)
Quarter: 2012Q2

REPORT INFORMATION
  Report Type: 
  Country: None (occurrence: None)
  Receive Date: 20120516
  Receipt Date: 20120508
  Transmission Date: 20120825
  Serious: No
  Sender: FDA-Public Use
  Company Number: US-BIOGENIDEC-2012BI016552

PATIENT
  Age: 42 Year
  Sex: Female

DRUGS (5)
  1. TYSABRI [Suspect]
     Indication: MULTIPLE SCLEROSIS
     Route: 042
     Dates: start: 20071001
  2. TYSABRI [Suspect]
     Route: 042
     Dates: start: 20071130, end: 20080407
  3. AVONEX [Concomitant]
     Indication: MULTIPLE SCLEROSIS
     Route: 030
     Dates: start: 20070101
  4. TYSABRI [Suspect]
     Route: 042
     Dates: start: 20090102
  5. TYSABRI [Suspect]
     Route: 042
     Dates: start: 20080917, end: 20081022

REACTIONS (2)
  - MALAISE [None]
  - POLLAKIURIA [None]
